FAERS Safety Report 5642525-7 (Version None)
Quarter: 2008Q1

REPORT INFORMATION
  Report Type: 
  Country: None (occurrence: None)
  Receive Date: 20080228
  Receipt Date: 20080226
  Transmission Date: 20080703
  Serious: Yes (Hospitalization)
  Sender: FDA-Public Use
  Company Number: JP-SP-2008-00548

PATIENT
  Age: 73 Year
  Sex: Male

DRUGS (3)
  1. IMMUCYST [Suspect]
     Indication: BLADDER CANCER
     Route: 043
     Dates: start: 20051006, end: 20051026
  2. ISONIAZID [Concomitant]
     Dates: start: 20051019, end: 20051026
  3. LOXOPROFEN SODIUM [Concomitant]
     Dates: start: 20051019, end: 20051026

REACTIONS (1)
  - HAEMATURIA [None]
